FAERS Safety Report 11878812 (Version 15)
Quarter: 2016Q4

REPORT INFORMATION
  Report Type: Report from Study
  Country: US (occurrence: US)
  Receive Date: 20151230
  Receipt Date: 20161102
  Transmission Date: 20170206
  Serious: Yes (Hospitalization, Other)
  Sender: FDA-Public Use
  Company Number: US-BAYER-2015-494191

PATIENT
  Age: 76 Year
  Sex: Female
  Weight: 59.41 kg

DRUGS (14)
  1. ADEMPAS [Suspect]
     Active Substance: RIOCIGUAT
     Indication: PULMONARY ARTERIAL HYPERTENSION
     Dosage: 2.5 MG, TID
     Route: 048
  2. ADEMPAS [Suspect]
     Active Substance: RIOCIGUAT
     Indication: PULMONARY ARTERIAL HYPERTENSION
     Dosage: 2.5 MG, TID
     Route: 048
  3. UPTRAVI [Concomitant]
     Active Substance: SELEXIPAG
     Dosage: 1000 ?G, UNK
  4. INVANZ [Concomitant]
     Active Substance: ERTAPENEM SODIUM
     Dosage: UNK
  5. DILTIAZEM. [Concomitant]
     Active Substance: DILTIAZEM
     Dosage: UNK
  6. ADEMPAS [Suspect]
     Active Substance: RIOCIGUAT
     Indication: PULMONARY ARTERIAL HYPERTENSION
     Dosage: 1 MG, TID
     Route: 048
  7. ADEMPAS [Suspect]
     Active Substance: RIOCIGUAT
     Indication: PULMONARY ARTERIAL HYPERTENSION
     Dosage: 2 MG, TID
     Route: 048
  8. UPTRAVI [Concomitant]
     Active Substance: SELEXIPAG
     Dosage: 800 ?G, BID
  9. ADEMPAS [Suspect]
     Active Substance: RIOCIGUAT
     Indication: PULMONARY ARTERIAL HYPERTENSION
     Dosage: UNK
     Dates: start: 20151201
  10. ADEMPAS [Suspect]
     Active Substance: RIOCIGUAT
     Indication: PULMONARY ARTERIAL HYPERTENSION
     Dosage: 2.5 MG, TID
     Route: 048
  11. ADEMPAS [Suspect]
     Active Substance: RIOCIGUAT
     Indication: PULMONARY ARTERIAL HYPERTENSION
     Dosage: 2.5 MG, TID
     Route: 048
  12. ADEMPAS [Suspect]
     Active Substance: RIOCIGUAT
     Indication: PULMONARY ARTERIAL HYPERTENSION
     Dosage: 2.5 MG, TID
     Route: 048
  13. ADEMPAS [Suspect]
     Active Substance: RIOCIGUAT
     Indication: PULMONARY ARTERIAL HYPERTENSION
     Dosage: 1.5 MG, TID
     Route: 048
  14. UPTRAVI [Concomitant]
     Active Substance: SELEXIPAG
     Dosage: 1200 ?G, UNK

REACTIONS (49)
  - Tachycardia [None]
  - Fall [Unknown]
  - Upper respiratory tract infection [None]
  - Dizziness [Recovered/Resolved]
  - Fear [Unknown]
  - Drug dose omission [Unknown]
  - Pulmonary arterial pressure increased [None]
  - Pneumonia [None]
  - Fatigue [Unknown]
  - Dyspnoea exertional [Not Recovered/Not Resolved]
  - Hypotension [None]
  - Haemorrhage [Unknown]
  - Dyspnoea [Unknown]
  - Sinus congestion [Unknown]
  - Oedema [Not Recovered/Not Resolved]
  - Nausea [Unknown]
  - Dysphagia [Unknown]
  - Lung disorder [Unknown]
  - Pulmonary thrombosis [None]
  - Arthralgia [Unknown]
  - Nasal congestion [Unknown]
  - Myalgia [None]
  - Pain [Unknown]
  - Epistaxis [Unknown]
  - Flushing [Unknown]
  - Scoliosis [Unknown]
  - Body height decreased [Unknown]
  - Back pain [Unknown]
  - Hiatus hernia [None]
  - Dyspnoea [None]
  - Heart rate increased [None]
  - Haemoglobin decreased [None]
  - Dyspnoea [None]
  - Pain in extremity [None]
  - Feeling abnormal [Recovered/Resolved]
  - Cough [Not Recovered/Not Resolved]
  - Dizziness [Unknown]
  - Arthralgia [None]
  - Spinal column stenosis [Unknown]
  - Foot fracture [Unknown]
  - Pneumonia bacterial [None]
  - Serratia test positive [None]
  - Blood count abnormal [None]
  - Post-traumatic pain [Not Recovered/Not Resolved]
  - Constipation [Unknown]
  - Cough [Unknown]
  - Feeling abnormal [Unknown]
  - Nasal dryness [Unknown]
  - Hypersensitivity [None]

NARRATIVE: CASE EVENT DATE: 201512
